FAERS Safety Report 12377957 (Version 1)
Quarter: 2016Q2

REPORT INFORMATION
  Report Type: Report from Study
  Country: US (occurrence: US)
  Receive Date: 20160517
  Receipt Date: 20160517
  Transmission Date: 20160815
  Serious: No
  Sender: FDA-Public Use
  Company Number: US-MALLINCKRODT-T201600927

PATIENT
  Age: 50 Year
  Sex: Male
  Weight: 79 kg

DRUGS (4)
  1. LAMICTAL [Concomitant]
     Active Substance: LAMOTRIGINE
  2. AUBAGIO [Concomitant]
     Active Substance: TERIFLUNOMIDE
  3. REPOSITORY CORTICOTROPIN INJECTION [Suspect]
     Active Substance: CORTICOTROPIN
     Indication: MULTIPLE SCLEROSIS RELAPSE
     Dosage: UNK DOSE/ONCE DAILY FOR 5 DAYS
     Route: 058
     Dates: start: 20160302, end: 20160305
  4. XANAX [Concomitant]
     Active Substance: ALPRAZOLAM
     Dosage: PRN

REACTIONS (7)
  - Muscle spasms [Recovered/Resolved]
  - Influenza like illness [Recovered/Resolved]
  - Nausea [Recovered/Resolved]
  - Muscle spasticity [Recovered/Resolved]
  - Feeling of body temperature change [Recovered/Resolved]
  - Incorrect product storage [Unknown]
  - Therapy cessation [Unknown]

NARRATIVE: CASE EVENT DATE: 201603
